FAERS Safety Report 23685761 (Version 4)
Quarter: 2024Q2

REPORT INFORMATION
  Report Type: Report from Study
  Country: DE (occurrence: DE)
  Receive Date: 20240329
  Receipt Date: 20240610
  Transmission Date: 20240716
  Serious: Yes (Hospitalization)
  Sender: FDA-Public Use
  Company Number: DE-JNJFOC-20240360550

PATIENT
  Age: 9 Decade
  Sex: Female
  Weight: 70 kg

DRUGS (3)
  1. DARZALEX [Suspect]
     Active Substance: DARATUMUMAB
     Indication: Plasma cell myeloma
     Dosage: LAST DOSE ADMINISTERED - 13-MAR-2024?30 DAYS AFTER THERAPY - 12-APR-2024
     Route: 042
     Dates: start: 20240111
  2. LENALIDOMIDE [Suspect]
     Active Substance: LENALIDOMIDE
     Indication: Plasma cell myeloma
     Dosage: LAST ADMINISTRATION BEFORE SAE: 13-MAR-2024?30 DAYS AFTER THERAPY: 12-APR-2024
     Route: 048
     Dates: start: 20240111
  3. DEXAMETHASONE [Suspect]
     Active Substance: DEXAMETHASONE
     Indication: Plasma cell myeloma
     Dosage: LAST ADMINISTRATION BEFORE SAE: 07-MAR-2024?30 DAYS AFTER THERAPY: 06-APR-2024
     Route: 048
     Dates: start: 20240111

REACTIONS (5)
  - Pancytopenia [Recovered/Resolved]
  - Diarrhoea [Unknown]
  - Vomiting [Unknown]
  - General physical health deterioration [Unknown]
  - Urinary tract infection [Unknown]

NARRATIVE: CASE EVENT DATE: 20240314
